FAERS Safety Report 8899276 (Version 1)
Quarter: 2012Q4

REPORT INFORMATION
  Report Type: 
  Country: US (occurrence: US)
  Receive Date: 20121108
  Receipt Date: 20121108
  Transmission Date: 20130627
  Serious: No
  Sender: FDA-Public Use
  Company Number: US-AMGEN-USASP2012033397

PATIENT
  Sex: Female
  Weight: 81.63 kg

DRUGS (8)
  1. ENBREL [Suspect]
     Indication: PRODUCT USED FOR UNKNOWN INDICATION
     Dosage: 50 mg, qwk
     Route: 058
  2. ZOLOFT [Concomitant]
     Dosage: 25 mg, UNK
  3. ZYRTEC [Concomitant]
     Dosage: 10 mg, UNK
  4. FLONASE [Concomitant]
     Dosage: 0.05 %, UNK
  5. OXYBUTYNIN [Concomitant]
     Dosage: 5 mg, UNK
  6. ESTRADIOL [Concomitant]
     Dosage: 0.1 mg, UNK
  7. BENADRYL                           /00000402/ [Concomitant]
     Dosage: 25 mg, UNK
  8. MULTIVITAMIN                       /00097801/ [Concomitant]

REACTIONS (2)
  - Injection site erythema [Recovering/Resolving]
  - Injection site reaction [Recovering/Resolving]
